FAERS Safety Report 12159918 (Version 1)
Quarter: 2016Q1

REPORT INFORMATION
  Report Type: Spontaneous
  Country: IT (occurrence: IT)
  Receive Date: 20160308
  Receipt Date: 20160308
  Transmission Date: 20160526
  Serious: Yes (Other)
  Sender: FDA-Public Use
  Company Number: IT-BAXTER-2016BAX010330

PATIENT
  Age: 25 Year
  Sex: Male

DRUGS (10)
  1. GM-CSF [Suspect]
     Active Substance: GRANULOCYTE-MACROPHAGE COLONY-STIMULATING FACTOR
     Indication: HAEMATOPOIETIC STEM CELL MOBILISATION
     Route: 065
  2. ETOPOSIDE. [Suspect]
     Active Substance: ETOPOSIDE
     Dosage: DAYS 1-5
     Route: 065
  3. CISPLATIN. [Suspect]
     Active Substance: CISPLATIN
     Indication: EXTRAGONADAL PRIMARY MALIGNANT TERATOMA
     Dosage: DAYS 1-5
     Route: 065
  4. ENDOXAN BAXTER [Suspect]
     Active Substance: CYCLOPHOSPHAMIDE
     Indication: EXTRAGONADAL PRIMARY MALIGNANT TERATOMA
     Dosage: DIVIDED INTO FOUR DOSES GIVEN ON  1,2 ,3,4
     Route: 065
  5. ETOPOSIDE. [Suspect]
     Active Substance: ETOPOSIDE
     Route: 065
  6. G-CSF [Suspect]
     Active Substance: GRANULOCYTE COLONY-STIMULATING FACTOR NOS
     Indication: COLONY STIMULATING FACTOR THERAPY
     Route: 065
  7. BLEOMYCIN [Suspect]
     Active Substance: BLEOMYCIN SULFATE
     Indication: EXTRAGONADAL PRIMARY MALIGNANT TERATOMA
     Dosage: ON DAYS 2,9,16
     Route: 065
  8. ETOPOSIDE. [Suspect]
     Active Substance: ETOPOSIDE
     Indication: EXTRAGONADAL PRIMARY MALIGNANT TERATOMA
     Dosage: DAYS 1-5
     Route: 065
  9. CISPLATIN. [Suspect]
     Active Substance: CISPLATIN
     Dosage: DAYS 1-5
     Route: 065
  10. CARBOPLATIN. [Suspect]
     Active Substance: CARBOPLATIN
     Indication: EXTRAGONADAL PRIMARY MALIGNANT TERATOMA
     Dosage: AUC 20
     Route: 065

REACTIONS (2)
  - Drug-induced liver injury [Recovered/Resolved]
  - Alpha 1 foetoprotein increased [Recovered/Resolved]
